FAERS Safety Report 9399697 (Version 1)
Quarter: 2013Q3

REPORT INFORMATION
  Report Type: Spontaneous
  Country: DE (occurrence: DE)
  Receive Date: 20130715
  Receipt Date: 20130715
  Transmission Date: 20140515
  Serious: Yes (Other)
  Sender: FDA-Public Use
  Company Number: PHHY2013DE071671

PATIENT
  Age: 73 Year
  Sex: Female

DRUGS (1)
  1. PROVAS [Suspect]
     Dosage: 80 MG, UNK

REACTIONS (5)
  - Red blood cell count decreased [Unknown]
  - Protein urine [Unknown]
  - Erythema [Unknown]
  - Alopecia [Unknown]
  - Muscle spasms [Unknown]
